FAERS Safety Report 6278622-5 (Version None)
Quarter: 2009Q3

REPORT INFORMATION
  Report Type: 
  Country: None (occurrence: None)
  Receive Date: 20090722
  Receipt Date: 20090408
  Transmission Date: 20100115
  Serious: No
  Sender: FDA-Public Use
  Company Number: US-BAUSCH-2009BL001585

PATIENT
  Age: 76 Year
  Sex: Female
  Weight: 49 kg

DRUGS (3)
  1. OPCON-A [Suspect]
     Indication: EYE PRURITUS
     Route: 047
     Dates: start: 20090331, end: 20090331
  2. OPCON-A [Suspect]
     Route: 047
     Dates: start: 20090407, end: 20090407
  3. MULTI-VITAMINS [Concomitant]

REACTIONS (1)
  - INSTILLATION SITE IRRITATION [None]
